FAERS Safety Report 7689607-6 (Version None)
Quarter: 2011Q3

REPORT INFORMATION
  Report Type: 
  Country: None (occurrence: None)
  Receive Date: 20110817
  Receipt Date: 20110812
  Transmission Date: 20111222
  Serious: Yes (Other)
  Sender: FDA-Public Use
  Company Number: US-PFIZER INC-2011154041

PATIENT
  Sex: Male
  Weight: 72.562 kg

DRUGS (7)
  1. COSOPT [Concomitant]
     Dosage: UNK, 2X/DAY
  2. ASPIRIN [Concomitant]
     Indication: HYPERTENSION
     Dosage: 81 MG, 2X/DAY
  3. XALATAN [Suspect]
     Dosage: DAILY
     Route: 047
     Dates: start: 20010101, end: 20110706
  4. XALATAN [Suspect]
     Dosage: DAILY
  5. CLONIDINE [Concomitant]
     Indication: HYPERTENSION
     Dosage: UNK, 2X/DAY
  6. AVODART [Concomitant]
     Indication: PROSTATOMEGALY
     Dosage: 0.5 MG, DAILY
  7. AMLODIPINE [Concomitant]
     Indication: PROSTATOMEGALY
     Dosage: 5 MG, DAILY
     Dates: start: 20010101

REACTIONS (6)
  - INTRAOCULAR PRESSURE INCREASED [None]
  - ROAD TRAFFIC ACCIDENT [None]
  - EYE PAIN [None]
  - HEADACHE [None]
  - WEIGHT DECREASED [None]
  - STRESS [None]
